FAERS Safety Report 7473301-0 (Version None)
Quarter: 2011Q2

REPORT INFORMATION
  Report Type: 
  Country: None (occurrence: None)
  Receive Date: 20110511
  Receipt Date: 20110427
  Transmission Date: 20111010
  Serious: Yes (Death, Life-Threatening, Hospitalization)
  Sender: FDA-Public Use
  Company Number: US-BAYER-200916675GPV

PATIENT
  Age: 50 Year
  Sex: Male
  Weight: 57 kg

DRUGS (2)
  1. NEXAVAR [Suspect]
     Indication: HEPATIC NEOPLASM MALIGNANT
     Route: 048
     Dates: start: 20081023, end: 20090306
  2. INSULIN [Concomitant]
     Indication: DIABETES MELLITUS
     Dosage: 16 IN AM AD 40 IN PM
     Route: 065
     Dates: start: 20060101

REACTIONS (3)
  - DYSPNOEA AT REST [None]
  - MULTI-ORGAN FAILURE [None]
  - SEPSIS [None]
